FAERS Safety Report 11176160 (Version 2)
Quarter: 2015Q3

REPORT INFORMATION
  Report Type: Spontaneous
  Country: IT (occurrence: IT)
  Receive Date: 20150609
  Receipt Date: 20150807
  Transmission Date: 20151125
  Serious: Yes (Hospitalization, Other)
  Sender: FDA-Public Use
  Company Number: PHHY2015IT066415

PATIENT
  Sex: Male

DRUGS (4)
  1. IRINOTECAN [Suspect]
     Active Substance: IRINOTECAN
     Indication: RECTAL CANCER
     Dosage: 300 MG, UNK
     Route: 042
     Dates: start: 20150504, end: 20150504
  2. 5-FLUOROURACIL [Suspect]
     Active Substance: FLUOROURACIL
     Indication: RECTAL CANCER
     Dosage: 4670 MG, UNK
     Route: 042
     Dates: start: 20150504, end: 20150506
  3. LEDERFOLIN [Suspect]
     Active Substance: LEUCOVORIN CALCIUM
     Indication: RECTAL CANCER
     Dosage: 330 MG, UNK
     Route: 065
     Dates: start: 20150504, end: 20150504
  4. ZALTRAP [Suspect]
     Active Substance: ZIV-AFLIBERCEPT
     Indication: RECTAL CANCER
     Dosage: 260 MG, UNK
     Route: 042
     Dates: start: 20150504, end: 20150504

REACTIONS (2)
  - Neutropenia [Recovered/Resolved]
  - Haemorrhoids [Recovered/Resolved]
